FAERS Safety Report 7764385-0 (Version None)
Quarter: 2011Q3

REPORT INFORMATION
  Report Type: 
  Country: None (occurrence: None)
  Receive Date: 20110919
  Receipt Date: 20110909
  Transmission Date: 20111222
  Serious: Yes (Life-Threatening)
  Sender: FDA-Public Use
  Company Number: LEO-2011-00656

PATIENT
  Sex: Female

DRUGS (3)
  1. INNOHEP [Suspect]
     Indication: ANTICOAGULANT THERAPY
     Dosage: SUBCUTANEOUS
     Route: 058
  2. INNOHEP [Suspect]
     Indication: SURGERY
     Dosage: SUBCUTANEOUS
     Route: 058
  3. WARFARIN SODIUM [Suspect]
     Indication: ATRIAL FIBRILLATION
     Dosage: ORAL
     Route: 048

REACTIONS (5)
  - DRUG INEFFECTIVE [None]
  - LEG AMPUTATION [None]
  - DEEP VEIN THROMBOSIS [None]
  - INCORRECT DOSE ADMINISTERED [None]
  - PERIPHERAL ISCHAEMIA [None]
